FAERS Safety Report 5451674-8 (Version None)
Quarter: 2007Q3

REPORT INFORMATION
  Report Type: 
  Country: None (occurrence: None)
  Receive Date: 20070913
  Receipt Date: 20070904
  Transmission Date: 20080115
  Serious: Yes (Disabling, Other)
  Sender: FDA-Public Use
  Company Number: GB-PFIZER INC-2007074446

PATIENT
  Age: 45 Year
  Sex: Female

DRUGS (2)
  1. CHAMPIX [Suspect]
     Route: 048
     Dates: start: 20070730, end: 20070817
  2. FLUOXETINE [Interacting]
     Dosage: TEXT:20 MG
     Route: 048

REACTIONS (2)
  - DEPRESSION [None]
  - DRUG INTERACTION [None]
